FAERS Safety Report 6436584-1 (Version None)
Quarter: 2009Q4

REPORT INFORMATION
  Report Type: 
  Country: None (occurrence: None)
  Receive Date: 20091110
  Receipt Date: 20091110
  Transmission Date: 20100525
  Serious: Yes (Death, Hospitalization)
  Sender: FDA-Public Use
  Company Number: None

PATIENT
  Sex: Male
  Weight: 64.5 kg

DRUGS (1)
  1. ALIMTA [Suspect]
     Dosage: 915 MG
     Dates: end: 20090721

REACTIONS (1)
  - JAUNDICE [None]
